FAERS Safety Report 14296422 (Version 2)
Quarter: 2018Q1

REPORT INFORMATION
  Report Type: Spontaneous
  Country: US (occurrence: US)
  Receive Date: 20171218
  Receipt Date: 20180328
  Transmission Date: 20180509
  Serious: Yes (Other)
  Sender: FDA-Public Use
  Company Number: US-PFIZER INC-2017536600

PATIENT
  Age: 66 Year
  Sex: Female

DRUGS (15)
  1. VALCYTE [Concomitant]
     Active Substance: VALGANCICLOVIR HYDROCHLORIDE
     Dosage: 450MG TABLET TWICE A DAY BY MOUTH
     Route: 048
     Dates: start: 2017, end: 2017
  2. GABAPENTIN. [Concomitant]
     Active Substance: GABAPENTIN
     Indication: NEUROPATHY PERIPHERAL
     Dosage: 300MG ONE TO THREE CAPSULES A DAY
  3. MIRAPEX [Concomitant]
     Active Substance: PRAMIPEXOLE DIHYDROCHLORIDE
     Indication: RESTLESS LEGS SYNDROME
     Dosage: 1MG ONE TABLET BY MOUTH AT BEDTIME
     Route: 048
  4. CLONAZEPAM. [Concomitant]
     Active Substance: CLONAZEPAM
     Indication: RELAXATION THERAPY
     Dosage: 1MG ONE TABLET BY MOUTH AT BEDTIME
     Route: 048
  5. ACTIGALL [Concomitant]
     Active Substance: URSODIOL
     Dosage: 300MG TWO TABLETS TWIC A DAY BY MOUTH
     Route: 048
     Dates: start: 2017, end: 2017
  6. ZANAFLEX [Concomitant]
     Active Substance: TIZANIDINE HYDROCHLORIDE
     Indication: MUSCLE RELAXANT THERAPY
     Dosage: 4MG ONE TABLET AT BEDTIME BY MOUTH
     Route: 048
  7. SYNTHROID [Concomitant]
     Active Substance: LEVOTHYROXINE SODIUM
     Indication: THYROIDECTOMY
     Dosage: 175MCG TABLET ONCE A DAY BY MOUTH
     Route: 048
  8. PROGRAF [Concomitant]
     Active Substance: TACROLIMUS\TACROLIMUS ANHYDROUS
     Dosage: 0.5MG ONE CAPSULE ONCE A DAY BY MOUTH
     Route: 048
  9. ACYCLOVIR. [Concomitant]
     Active Substance: ACYCLOVIR
     Dosage: 400MG TABLET TWICE A DAY BY MOUTH
     Route: 048
  10. ASPIRIN. [Concomitant]
     Active Substance: ASPIRIN
     Indication: BLOOD DISORDER
     Dosage: 81MG TABLET ONCE A DAY BY MOUTH
     Route: 048
     Dates: start: 201704
  11. VFEND [Suspect]
     Active Substance: VORICONAZOLE
     Indication: STEM CELL TRANSPLANT
     Dosage: UNK
     Dates: start: 20170131, end: 20170803
  12. PENICILLIN V POTASSIUM. [Concomitant]
     Active Substance: PENICILLIN V POTASSIUM
     Indication: ANTIBIOTIC THERAPY
     Dosage: ONE TABLET TWICE A DAY BY MOUTH
     Route: 048
     Dates: start: 201702
  13. ELIQUIS [Concomitant]
     Active Substance: APIXABAN
     Indication: BLOOD DISORDER
     Dosage: 5MG ONE TABLET TWICE A DAY BY MOUTH
     Route: 048
     Dates: start: 201704
  14. PEPCID [Concomitant]
     Active Substance: FAMOTIDINE
     Indication: GASTROOESOPHAGEAL REFLUX DISEASE
     Dosage: 20MG TABLET TWICE A DAY BY MOUTH
     Route: 048
  15. HYDROCODONE [Concomitant]
     Active Substance: HYDROCODONE
     Indication: PAIN
     Dosage: 10/325MG TABLET AS NEEDED

REACTIONS (1)
  - Thrombosis [Unknown]

NARRATIVE: CASE EVENT DATE: 201704
